FAERS Safety Report 8768343 (Version 1)
Quarter: 2012Q4

REPORT INFORMATION
  Report Type: Report from Study
  Country: US (occurrence: US)
  Receive Date: 20120905
  Receipt Date: 20120905
  Transmission Date: 20130627
  Serious: Yes (Life-Threatening, Hospitalization)
  Sender: FDA-Public Use
  Company Number: US-ROCHE-1112333

PATIENT
  Age: 78 Year
  Sex: Female
  Weight: 79.82 kg

DRUGS (14)
  1. AVASTIN [Suspect]
     Indication: NON-SMALL CELL LUNG CANCER
     Dosage: on day 1 every 21 days, Date of last dose prior :06/Nov/2009
     Route: 042
     Dates: start: 20090918, end: 20091106
  2. PEMETREXED [Suspect]
     Indication: NON-SMALL CELL LUNG CANCER
     Dosage: on day 1 every 21 days, Date of last dose prior :06/Nov/2009
     Route: 042
     Dates: start: 20090918, end: 20091106
  3. CARBOPLATIN [Suspect]
     Indication: NON-SMALL CELL LUNG CANCER
     Dosage: on day 1 every 21 days, Date of last dose prior :06/Nov/2009
     Route: 042
     Dates: start: 20090918, end: 20091106
  4. FOLIC ACID [Concomitant]
     Route: 065
     Dates: start: 20090903
  5. VITAMIN B12 [Concomitant]
     Route: 065
     Dates: start: 20090903
  6. LORAZEPAM [Concomitant]
     Route: 065
     Dates: start: 20090920
  7. LEVOTHROID [Concomitant]
     Route: 065
     Dates: start: 2009
  8. ASPIRIN [Concomitant]
     Route: 065
     Dates: start: 2009
  9. METOPROLOL [Concomitant]
     Route: 065
     Dates: start: 2001
  10. PRILOSEC [Concomitant]
     Route: 065
     Dates: start: 2009
  11. AMLODIPINE [Concomitant]
     Route: 065
     Dates: start: 2008
  12. VYTORIN [Concomitant]
     Route: 065
     Dates: start: 2005
  13. ZOLOFT [Concomitant]
     Route: 065
     Dates: start: 200910
  14. VITAMINS [Concomitant]
     Route: 065
     Dates: start: 2009

REACTIONS (3)
  - Cerebrovascular accident [Not Recovered/Not Resolved]
  - Non-cardiac chest pain [Recovered/Resolved]
  - Anaemia [Not Recovered/Not Resolved]
